FAERS Safety Report 15939943 (Version 1)
Quarter: 2019Q1

REPORT INFORMATION
  Report Type: Report from Study
  Country: US (occurrence: US)
  Receive Date: 20190208
  Receipt Date: 20190208
  Transmission Date: 20190417
  Serious: Yes (Death)
  Sender: FDA-Public Use
  Company Number: US-EXELIXIS-CABO-19018618

PATIENT
  Sex: Male

DRUGS (9)
  1. CABOMETYX [Suspect]
     Active Substance: CABOZANTINIB S-MALATE
     Indication: RENAL CANCER
     Dosage: 40 MG, QD
     Route: 048
     Dates: start: 20180524
  2. ATORVASTATIN [Concomitant]
     Active Substance: ATORVASTATIN
  3. LEVOTHYROXINE. [Concomitant]
     Active Substance: LEVOTHYROXINE
  4. TAMULOSIN [Concomitant]
     Active Substance: TAMSULOSIN
  5. CARVEDILOL. [Concomitant]
     Active Substance: CARVEDILOL
  6. SODIUM BICARBONATE. [Concomitant]
     Active Substance: SODIUM BICARBONATE
  7. NOVOL [Concomitant]
  8. LEVEMIR [Concomitant]
     Active Substance: INSULIN DETEMIR
  9. LOPERMIDE [Concomitant]

REACTIONS (1)
  - Death [Fatal]
